FAERS Safety Report 5315694-6 (Version None)
Quarter: 2007Q2

REPORT INFORMATION
  Report Type: 
  Country: None (occurrence: None)
  Receive Date: 20070503
  Receipt Date: 20070425
  Transmission Date: 20071010
  Serious: Yes (Hospitalization, Disabling)
  Sender: FDA-Public Use
  Company Number: US-MERCK-0704USA05923

PATIENT
  Age: 63 Year
  Sex: Male

DRUGS (3)
  1. ZOCOR [Suspect]
     Indication: HYPERCHOLESTEROLAEMIA
     Route: 048
     Dates: start: 20060806
  2. INDERAL [Concomitant]
     Route: 065
  3. LEXAPRO [Concomitant]
     Route: 065

REACTIONS (6)
  - ANXIETY [None]
  - ASTHENIA [None]
  - DEPRESSION [None]
  - FATIGUE [None]
  - LETHARGY [None]
  - MYALGIA [None]
